FAERS Safety Report 6640239-8 (Version None)
Quarter: 2010Q1

REPORT INFORMATION
  Report Type: 
  Country: None (occurrence: None)
  Receive Date: 20100303
  Receipt Date: 20100209
  Transmission Date: 20100710
  Serious: Yes (Other)
  Sender: FDA-Public Use
  Company Number: 2010-00288

PATIENT
  Age: 44 Year
  Sex: Male
  Weight: 111.1313 kg

DRUGS (3)
  1. ZICAM RAPIDMELTS WITH VITAMIN C [Suspect]
     Indication: NASOPHARYNGITIS
     Dosage: ONE DOSE ORAL
     Route: 048
     Dates: start: 20091201
  2. CITALOPRAM HYDROBROMIDE [Concomitant]
  3. OMEPRAZOLE [Concomitant]

REACTIONS (4)
  - BLOOD PRESSURE DECREASED [None]
  - PHARYNGEAL OEDEMA [None]
  - SWELLING FACE [None]
  - URTICARIA [None]
